FAERS Safety Report 5722842-2 (Version None)
Quarter: 2008Q2

REPORT INFORMATION
  Report Type: 
  Country: None (occurrence: None)
  Receive Date: 20080429
  Receipt Date: 20080110
  Transmission Date: 20081010
  Serious: No
  Sender: FDA-Public Use
  Company Number: US-ASTRAZENECA-2008UW00715

PATIENT
  Age: 5 Year
  Sex: Male
  Weight: 17.2 kg

DRUGS (7)
  1. NEXIUM [Suspect]
     Indication: GASTROOESOPHAGEAL REFLUX DISEASE
     Route: 048
     Dates: start: 20060101, end: 20071101
  2. NEXIUM [Suspect]
     Route: 048
     Dates: start: 20071101
  3. NEXIUM [Suspect]
     Route: 048
  4. SINGULAIR [Concomitant]
  5. REGLAN [Concomitant]
  6. XOPENEX [Concomitant]
  7. PULMICORT RESPULES [Concomitant]

REACTIONS (1)
  - RESPIRATORY DISORDER [None]
